FAERS Safety Report 14288366 (Version 2)
Quarter: 2018Q1

REPORT INFORMATION
  Report Type: Spontaneous
  Country: US (occurrence: US)
  Receive Date: 20171215
  Receipt Date: 20180105
  Transmission Date: 20180509
  Serious: No
  Sender: FDA-Public Use
  Company Number: US-TEVA-2017-US-827758

PATIENT
  Age: 72 Year
  Sex: Female
  Weight: 46.71 kg

DRUGS (1)
  1. MUCUS ER [Suspect]
     Active Substance: GUAIFENESIN
     Indication: RESPIRATORY TRACT CONGESTION
     Dosage: 2400 MILLIGRAM DAILY;
     Route: 048
     Dates: start: 20171030, end: 20171106

REACTIONS (1)
  - Drug ineffective [Unknown]
